FAERS Safety Report 15866220 (Version 4)
Quarter: 2019Q4

REPORT INFORMATION
  Report Type: Spontaneous
  Country: US (occurrence: US)
  Receive Date: 20190125
  Receipt Date: 20191003
  Transmission Date: 20200122
  Serious: No
  Sender: FDA-Public Use
  Company Number: US-PFIZER INC-2019034117

PATIENT
  Age: 67 Year
  Sex: Female

DRUGS (1)
  1. XALKORI [Suspect]
     Active Substance: CRIZOTINIB
     Indication: NON-SMALL CELL LUNG CANCER
     Dosage: 250 MG, UNK

REACTIONS (5)
  - Neoplasm progression [Unknown]
  - Confusional state [Unknown]
  - Nasopharyngitis [Unknown]
  - Eating disorder [Unknown]
  - Laryngitis [Unknown]
